FAERS Safety Report 4502872-9 (Version None)
Quarter: 2004Q4

REPORT INFORMATION
  Report Type: 
  Country: None (occurrence: None)
  Receive Date: 20041112
  Receipt Date: 20041026
  Transmission Date: 20050328
  Serious: Yes (Hospitalization)
  Sender: FDA-Public Use
  Company Number: DSA_70507_2004

PATIENT
  Age: 19 Year
  Sex: Male

DRUGS (4)
  1. AZATHIOPRINE [Suspect]
     Indication: CROHN'S DISEASE
     Dosage: 75 MG QDAY PO
     Route: 048
     Dates: end: 20031201
  2. AZATHIOPRINE [Suspect]
     Indication: CROHN'S DISEASE
     Dosage: 175 MG QDAY
     Dates: start: 20020301
  3. INFLIXIMAB [Suspect]
     Indication: CROHN'S DISEASE
     Dosage: 5 MG/KG IV
     Route: 042
     Dates: start: 20020301
  4. PREDNISONE [Concomitant]

REACTIONS (12)
  - ALANINE AMINOTRANSFERASE INCREASED [None]
  - ASPARTATE AMINOTRANSFERASE INCREASED [None]
  - BLOOD LACTATE DEHYDROGENASE INCREASED [None]
  - DRUG EFFECT DECREASED [None]
  - FREQUENT BOWEL MOVEMENTS [None]
  - LEUKOPENIA [None]
  - LUNG INFILTRATION [None]
  - MUSCLE CRAMP [None]
  - OROPHARYNGEAL CANDIDIASIS [None]
  - PNEUMOCYSTIS CARINII INFECTION [None]
  - PO2 DECREASED [None]
  - WEIGHT DECREASED [None]
